FAERS Safety Report 20593130 (Version 1)
Quarter: 2022Q1

REPORT INFORMATION
  Report Type: Report from Study
  Country: CA (occurrence: CA)
  Receive Date: 20220315
  Receipt Date: 20220315
  Transmission Date: 20220423
  Serious: Yes (Hospitalization)
  Sender: FDA-Public Use
  Company Number: CA-ABBVIE-22K-028-4313853-00

PATIENT
  Age: 80 Year
  Sex: Female

DRUGS (1)
  1. RINVOQ [Suspect]
     Active Substance: UPADACITINIB
     Indication: Rheumatoid arthritis
     Route: 048
     Dates: start: 20210524

REACTIONS (2)
  - Chest pain [Unknown]
  - Dyspepsia [Unknown]

NARRATIVE: CASE EVENT DATE: 20220306
